FAERS Safety Report 14383054 (Version 2)
Quarter: 2018Q1

REPORT INFORMATION
  Report Type: Spontaneous
  Country: DE (occurrence: DE)
  Receive Date: 20180114
  Receipt Date: 20180215
  Transmission Date: 20180509
  Serious: Yes (Hospitalization, Other)
  Sender: FDA-Public Use
  Company Number: DE-BAXTER-2018BAX001650

PATIENT
  Age: 3 Year
  Sex: Male
  Weight: 18.5 kg

DRUGS (26)
  1. LYSODREN [Suspect]
     Active Substance: MITOTANE
     Indication: ADRENOCORTICAL CARCINOMA
     Dosage: 4 G, BID
     Route: 065
     Dates: start: 20170330, end: 2017
  2. VEPESID [Suspect]
     Active Substance: ETOPOSIDE
     Indication: ADRENOCORTICAL CARCINOMA
     Route: 065
  3. LYSODREN [Suspect]
     Active Substance: MITOTANE
     Indication: METASTASES TO LUNG
     Dosage: 4 G, BID
     Route: 065
     Dates: start: 20170315, end: 20170319
  4. LYSODREN [Suspect]
     Active Substance: MITOTANE
     Dosage: 1 G, BID
     Route: 065
     Dates: start: 20171010, end: 20171017
  5. CARBOPLATIN. [Suspect]
     Active Substance: CARBOPLATIN
     Indication: METASTASES TO LUNG
     Route: 065
  6. VEPESID [Suspect]
     Active Substance: ETOPOSIDE
     Indication: METASTASES TO LUNG
     Route: 065
  7. LYSODREN [Suspect]
     Active Substance: MITOTANE
     Dosage: 3 G, BID
     Route: 065
     Dates: start: 20170714, end: 20171006
  8. LYSODREN [Suspect]
     Active Substance: MITOTANE
     Dosage: 500 MG, BID
     Route: 065
     Dates: start: 2017
  9. CARBOPLATIN. [Suspect]
     Active Substance: CARBOPLATIN
     Dosage: DOSE REINTRODUCED
     Route: 065
  10. VINCRISTINE [Suspect]
     Active Substance: VINCRISTINE
     Indication: CHEMOTHERAPY
     Route: 065
  11. AMPHO MORONAL [Concomitant]
     Active Substance: AMPHOTERICIN B
     Indication: PRODUCT USED FOR UNKNOWN INDICATION
     Route: 065
  12. VEPESID [Suspect]
     Active Substance: ETOPOSIDE
     Dosage: DOSE REINTRODUCED
     Route: 065
  13. CARBOPLATIN. [Suspect]
     Active Substance: CARBOPLATIN
     Indication: ADRENOCORTICAL CARCINOMA
     Route: 065
  14. ADRIAMYCIN [Suspect]
     Active Substance: DOXORUBICIN HYDROCHLORIDE
     Indication: CHEMOTHERAPY
     Route: 065
  15. COTRIM [Concomitant]
     Active Substance: SULFAMETHOXAZOLE\TRIMETHOPRIM
     Indication: PRODUCT USED FOR UNKNOWN INDICATION
     Route: 065
  16. HYDROCORTISONE. [Concomitant]
     Active Substance: HYDROCORTISONE
     Indication: PRODUCT USED FOR UNKNOWN INDICATION
     Route: 065
  17. HOLOXAN [Suspect]
     Active Substance: IFOSFAMIDE
     Route: 065
  18. VINCRISTINE [Suspect]
     Active Substance: VINCRISTINE
     Route: 065
  19. LYSODREN [Suspect]
     Active Substance: MITOTANE
     Dosage: 125 MG, BID
     Route: 065
     Dates: start: 20170118, end: 20170315
  20. ADRIAMYCIN [Suspect]
     Active Substance: DOXORUBICIN HYDROCHLORIDE
     Route: 065
  21. VINCRISTINE [Suspect]
     Active Substance: VINCRISTINE
     Route: 065
  22. FLUDROCORTISONE [Concomitant]
     Active Substance: FLUDROCORTISONE
     Indication: PRODUCT USED FOR UNKNOWN INDICATION
     Route: 065
  23. HOLOXAN [Suspect]
     Active Substance: IFOSFAMIDE
     Indication: CHEMOTHERAPY
     Route: 065
  24. HOLOXAN [Suspect]
     Active Substance: IFOSFAMIDE
     Route: 065
  25. LYSODREN [Suspect]
     Active Substance: MITOTANE
     Dosage: 250 MG, BID, DOSE REINTRODUCED
     Route: 065
     Dates: start: 20171030
  26. ADRIAMYCIN [Suspect]
     Active Substance: DOXORUBICIN HYDROCHLORIDE
     Route: 065

REACTIONS (10)
  - Decreased appetite [Recovered/Resolved]
  - Sepsis [Recovered/Resolved]
  - Electrocardiogram QT prolonged [Not Recovered/Not Resolved]
  - Weight decreased [Recovered/Resolved]
  - Overdose [Unknown]
  - Somnolence [Recovered/Resolved]
  - Asthenia [Recovered/Resolved]
  - Pyrexia [Recovered/Resolved]
  - Fatigue [Recovered/Resolved]
  - Dehydration [Recovered/Resolved]

NARRATIVE: CASE EVENT DATE: 2017
